FAERS Safety Report 24918609 (Version 1)
Quarter: 2025Q1

REPORT INFORMATION
  Report Type: Spontaneous
  Country: SE (occurrence: SE)
  Receive Date: 20250203
  Receipt Date: 20250203
  Transmission Date: 20250409
  Serious: Yes (Hospitalization)
  Sender: DENTSPLY
  Company Number: SE-DENTSPLY-2025SCDP000025

PATIENT
  Sex: Male

DRUGS (1)
  1. LIDOCAINE\PRILOCAINE [Suspect]
     Active Substance: LIDOCAINE\PRILOCAINE
     Indication: Product used for unknown indication
     Route: 065

REACTIONS (3)
  - Off label use [Recovered/Resolved]
  - Methaemoglobinaemia [Unknown]
  - Overdose [Recovered/Resolved]
